FAERS Safety Report 6690732-7 (Version None)
Quarter: 2010Q2

REPORT INFORMATION
  Report Type: 
  Country: None (occurrence: None)
  Receive Date: 20100420
  Receipt Date: 20100420
  Transmission Date: 20101027
  Serious: No
  Sender: FDA-Public Use
  Company Number: None

PATIENT

DRUGS (1)
  1. ARSENIC CIGARETTES HIGH LEVEL [Suspect]
     Indication: BLOOD ARSENIC INCREASED
     Dosage: HIGH LEVEL

REACTIONS (3)
  - BLOOD ARSENIC INCREASED [None]
  - EXPOSURE TO TOXIC AGENT [None]
  - PRODUCT LABEL ISSUE [None]
